FAERS Safety Report 11180831 (Version 1)
Quarter: 2015Q2

REPORT INFORMATION
  Report Type: Spontaneous
  Country: TN (occurrence: TN)
  Receive Date: 20150611
  Receipt Date: 20150611
  Transmission Date: 20150821
  Serious: Yes (Hospitalization, Other)
  Sender: FDA-Public Use
  Company Number: TN-ACTAVIS-2015-11420

PATIENT
  Age: 33 Year
  Sex: Male

DRUGS (2)
  1. MESALAZINE (UNKNOWN) [Suspect]
     Active Substance: MESALAMINE
     Dosage: 2 G, DAILY
     Route: 065
  2. MESALAZINE (UNKNOWN) [Suspect]
     Active Substance: MESALAMINE
     Indication: COLITIS ULCERATIVE
     Dosage: 4 G, DAILY
     Route: 065

REACTIONS (1)
  - Pancreatitis acute [Recovered/Resolved]
